FAERS Safety Report 4714501-X (Version None)
Quarter: 2005Q3

REPORT INFORMATION
  Report Type: 
  Country: None (occurrence: None)
  Receive Date: 20050705
  Receipt Date: 20050425
  Transmission Date: 20060218
  Serious: Yes (Other)
  Sender: FDA-Public Use
  Company Number: 2005-0008284

PATIENT
  Age: 50 Year
  Sex: Male
  Weight: 86.637 kg

DRUGS (7)
  1. VIREAD [Suspect]
     Indication: HIV INFECTION
     Dosage: 300 MG, 1 IN 1 D, ORAL
     Route: 048
     Dates: start: 20030321, end: 20040819
  2. KALETRA [Concomitant]
  3. NEVIRAPINE(NEVIPRAPINE) [Concomitant]
  4. BACTRIM DS [Concomitant]
  5. LISINOPRIL [Concomitant]
  6. FERROUS SULPHATE(FERROUS SULFATE) [Concomitant]
  7. IMODIUM [Concomitant]

REACTIONS (1)
  - FANCONI SYNDROME ACQUIRED [None]
